FAERS Safety Report 14882782 (Version 1)
Quarter: 2018Q2

REPORT INFORMATION
  Report Type: Spontaneous
  Country: US (occurrence: US)
  Receive Date: 20180511
  Receipt Date: 20180511
  Transmission Date: 20180711
  Serious: No
  Sender: FDA-Public Use
  Company Number: US-ALLERGAN-1805844US

PATIENT
  Sex: Female

DRUGS (2)
  1. RHOFADE [Suspect]
     Active Substance: OXYMETAZOLINE HYDROCHLORIDE
     Indication: ROSACEA
     Dosage: ONE TIME
     Route: 061
  2. VELTIN [Concomitant]
     Active Substance: CLINDAMYCIN PHOSPHATE\TRETINOIN
     Indication: ACNE
     Dosage: APPLIED AFFECTED AREA, QHS
     Route: 061

REACTIONS (4)
  - Application site erythema [Recovered/Resolved]
  - Off label use [Unknown]
  - Application site irritation [Recovered/Resolved]
  - Application site pain [Recovered/Resolved]
